FAERS Safety Report 7819033-8 (Version None)
Quarter: 2011Q4

REPORT INFORMATION
  Report Type: 
  Country: None (occurrence: None)
  Receive Date: 20111012
  Receipt Date: 20110930
  Transmission Date: 20120403
  Serious: Yes (Hospitalization)
  Sender: FDA-Public Use
  Company Number: AUR-APL-2009-00479

PATIENT
  Age: 62 Year
  Sex: Male

DRUGS (7)
  1. HYDROCHLOROTHIAZIDE [Suspect]
     Indication: HYPERTENSION
     Dosage: 25 MG (25 MG, 1 IN 1 D),ORAL; 12.5 MG (12.5 MG, 1 IN 1 D),ORAL
     Route: 048
     Dates: start: 20090522, end: 20090618
  2. HYDROCHLOROTHIAZIDE [Suspect]
     Indication: HYPERTENSION
     Dosage: 25 MG (25 MG, 1 IN 1 D),ORAL; 12.5 MG (12.5 MG, 1 IN 1 D),ORAL
     Route: 048
     Dates: start: 20090424, end: 20090521
  3. ADVIL (MEFENAMIC ACID) [Concomitant]
  4. VITAMIN B6 [Concomitant]
  5. VITAMIN B12 [Concomitant]
  6. AMLODIPINE BESYLATE/OLMESARTAN MEDOXEMIL [Suspect]
     Indication: HYPERTENSION
     Dosage: 10/40 MG/DAY (1 IN 1 D),ORAL; 5/40 MG/DAY (1 IN 1 D),ORAL
     Route: 048
     Dates: start: 20090327, end: 20090618
  7. AMLODIPINE BESYLATE/OLMESARTAN MEDOXEMIL [Suspect]
     Indication: HYPERTENSION
     Dosage: 10/40 MG/DAY (1 IN 1 D),ORAL; 5/40 MG/DAY (1 IN 1 D),ORAL
     Route: 048
     Dates: start: 20090226, end: 20090326

REACTIONS (6)
  - HAEMATURIA [None]
  - CHOLECYSTITIS [None]
  - RENAL FAILURE [None]
  - DEHYDRATION [None]
  - PANCREATITIS [None]
  - GASTRITIS [None]
